FAERS Safety Report 15525646 (Version 1)
Quarter: 2018Q4

REPORT INFORMATION
  Report Type: Spontaneous
  Country: US (occurrence: US)
  Receive Date: 20181018
  Receipt Date: 20181018
  Transmission Date: 20190205
  Serious: Yes (Hospitalization, Other)
  Sender: FDA-Public Use
  Company Number: US-APOTEX-2018AP022699

PATIENT
  Age: 44 Year
  Sex: Male

DRUGS (2)
  1. MYCOPHENOLATE [Suspect]
     Active Substance: MYCOPHENOLIC ACID
     Indication: DRUG DEPENDENCE
     Dosage: 1500 MG, BID
     Route: 065
  2. PREDNISONE. [Suspect]
     Active Substance: PREDNISONE
     Indication: PRODUCT USED FOR UNKNOWN INDICATION
     Dosage: 40 TO 60 MG DAILY
     Route: 065

REACTIONS (5)
  - Infection [Recovered/Resolved]
  - Cellulitis [Recovered/Resolved]
  - Secondary immunodeficiency [Recovered/Resolved]
  - Drug ineffective [Unknown]
  - Drug effect incomplete [Unknown]
